FAERS Safety Report 4569802-5 (Version None)
Quarter: 2005Q1

REPORT INFORMATION
  Report Type: 
  Country: None (occurrence: None)
  Receive Date: 20050131
  Receipt Date: 20050118
  Transmission Date: 20050727
  Serious: Yes (Hospitalization, Other)
  Sender: FDA-Public Use
  Company Number: 2005016397

PATIENT
  Age: 71 Year
  Sex: Female
  Weight: 86.637 kg

DRUGS (6)
  1. LIPITOR [Suspect]
     Indication: ILL-DEFINED DISORDER
     Dosage: 10 MG (1 IN 1 D)
     Dates: end: 20040808
  2. EZETIMIBE (EZETIMIBE) [Suspect]
     Indication: ILL-DEFINED DISORDER
     Dosage: 10 MG (1 IN 1 D)
     Dates: end: 20040808
  3. PROPRANOLOL [Concomitant]
  4. HYDROCHLOROTHIAZIDE [Concomitant]
  5. IRBESARTAN [Concomitant]
  6. ACETYLSALICYLIC ACID SRT [Concomitant]

REACTIONS (49)
  - ABDOMINAL PAIN UPPER [None]
  - ALDOLASE INCREASED [None]
  - ANAEMIA [None]
  - ANOREXIA [None]
  - ARTHRITIS [None]
  - ATELECTASIS [None]
  - BLOOD ALBUMIN DECREASED [None]
  - BLOOD CHLORIDE DECREASED [None]
  - BLOOD CREATINE PHOSPHOKINASE MB INCREASED [None]
  - BLOOD MAGNESIUM DECREASED [None]
  - BLOOD TRIGLYCERIDES INCREASED [None]
  - BURSITIS [None]
  - CARPAL TUNNEL SYNDROME [None]
  - CERVICAL SPINAL STENOSIS [None]
  - CHEST PAIN [None]
  - CONSTIPATION [None]
  - DEHYDRATION [None]
  - DIFFICULTY IN WALKING [None]
  - DIZZINESS [None]
  - DYSPNOEA EXERTIONAL [None]
  - DYSSTASIA [None]
  - ELECTROCARDIOGRAM REPOLARISATION ABNORMALITY [None]
  - ELECTROCARDIOGRAM ST SEGMENT ELEVATION [None]
  - FALL [None]
  - FATIGUE [None]
  - GENERALISED OEDEMA [None]
  - GLOBULINS DECREASED [None]
  - HEART RATE INCREASED [None]
  - HYPERGLYCAEMIA [None]
  - HYPONATRAEMIA [None]
  - HYPOTHYROIDISM [None]
  - INSOMNIA [None]
  - LUMBAR SPINAL STENOSIS [None]
  - MALNUTRITION [None]
  - MITRAL VALVE DISEASE [None]
  - PALPITATIONS [None]
  - PARAESTHESIA [None]
  - PLEURAL DISORDER [None]
  - PNEUMONIA [None]
  - PREALBUMIN DECREASED [None]
  - PROTEIN TOTAL INCREASED [None]
  - PRURITUS [None]
  - QRS AXIS ABNORMAL [None]
  - RENAL FAILURE ACUTE [None]
  - RHABDOMYOLYSIS [None]
  - SPONDYLITIS [None]
  - TRICUSPID VALVE DISEASE [None]
  - URINARY TRACT INFECTION [None]
  - VERTIGO [None]
